FAERS Safety Report 10208564 (Version 2)
Quarter: 2014Q2

REPORT INFORMATION
  Report Type: Spontaneous
  Country: PR (occurrence: PR)
  Receive Date: 20140530
  Receipt Date: 20140530
  Transmission Date: 20141212
  Serious: Yes (Hospitalization)
  Sender: FDA-Public Use
  Company Number: PR-ABBVIE-12P-131-0970990-00

PATIENT
  Age: 54 Year
  Sex: Female
  Weight: 84.44 kg

DRUGS (5)
  1. HUMIRA [Suspect]
     Indication: RHEUMATOID ARTHRITIS
     Route: 058
     Dates: start: 2012
  2. PLAQUENIL [Concomitant]
     Indication: RHEUMATOID ARTHRITIS
     Route: 048
  3. PAXIL [Concomitant]
     Indication: DEPRESSION
     Route: 048
  4. KLONOPIN [Concomitant]
     Indication: DEPRESSION
     Route: 048
  5. METHOTREXATE [Concomitant]
     Indication: PRODUCT USED FOR UNKNOWN INDICATION

REACTIONS (17)
  - Spinal column injury [Not Recovered/Not Resolved]
  - Nasopharyngitis [Recovered/Resolved]
  - Pharyngitis [Recovered/Resolved]
  - Urinary tract infection [Unknown]
  - Pruritus generalised [Recovered/Resolved]
  - Spinal column injury [Recovered/Resolved]
  - Road traffic accident [Recovered/Resolved]
  - Muscle spasms [Not Recovered/Not Resolved]
  - Headache [Recovered/Resolved]
  - Neck mass [Unknown]
  - Inappropriate schedule of drug administration [Unknown]
  - Bone pain [Unknown]
  - Arthralgia [Unknown]
  - Muscle spasms [Unknown]
  - Joint swelling [Unknown]
  - Spinal operation [Unknown]
  - Intervertebral disc protrusion [Recovered/Resolved]
